FAERS Safety Report 8860947 (Version 2)
Quarter: 2013Q3

REPORT INFORMATION
  Report Type: Spontaneous
  Country: US (occurrence: US)
  Receive Date: 20121025
  Receipt Date: 20130816
  Transmission Date: 20140515
  Serious: Yes (Other)
  Sender: FDA-Public Use
  Company Number: US-US-EMD SERONO, INC.-7005641

PATIENT
  Sex: Female
  Weight: 90 kg

DRUGS (3)
  1. REBIF [Suspect]
     Indication: MULTIPLE SCLEROSIS
     Route: 058
     Dates: start: 20041130, end: 200905
  2. REBIF [Suspect]
     Dates: end: 2010
  3. SYNTHROID [Concomitant]
     Indication: HYPOTHYROIDISM

REACTIONS (3)
  - Basal cell carcinoma [Recovering/Resolving]
  - Malignant melanoma [Recovering/Resolving]
  - Precancerous cells present [Recovering/Resolving]
